FAERS Safety Report 10994325 (Version 1)
Quarter: 2015Q2

REPORT INFORMATION
  Report Type: Spontaneous
  Country: ID (occurrence: ID)
  Receive Date: 20150407
  Receipt Date: 20150407
  Transmission Date: 20150821
  Serious: Yes (Hospitalization, Other)
  Sender: FDA-Public Use
  Company Number: ID-BRISTOL-MYERS SQUIBB COMPANY-BMS-2015-005958

PATIENT
  Age: 20 Year
  Sex: Male

DRUGS (3)
  1. ABILIFY [Suspect]
     Active Substance: ARIPIPRAZOLE
     Indication: PSYCHOTIC DISORDER
     Dosage: 10 MG, QD
     Route: 030
     Dates: start: 20101224, end: 20141224
  2. ABILIFY [Suspect]
     Active Substance: ARIPIPRAZOLE
     Indication: PSYCHOTIC DISORDER
     Dosage: 10 MG, QD
     Route: 048
     Dates: start: 20141224, end: 20150107
  3. CLOZAPIN [Suspect]
     Active Substance: CLOZAPINE
     Indication: PRODUCT USED FOR UNKNOWN INDICATION
     Dosage: 25 MG, QD
     Route: 048
     Dates: start: 20141210, end: 20150107

REACTIONS (4)
  - Encephalitis [Unknown]
  - Neuroleptic malignant syndrome [Unknown]
  - Off label use [Unknown]
  - Constipation [Unknown]

NARRATIVE: CASE EVENT DATE: 20141231
